FAERS Safety Report 15636174 (Version 3)
Quarter: 2022Q3

REPORT INFORMATION
  Report Type: Spontaneous
  Country: FR (occurrence: FR)
  Receive Date: 20181120
  Receipt Date: 20220818
  Transmission Date: 20221027
  Serious: Yes (Hospitalization)
  Sender: FDA-Public Use
  Company Number: FR-EMA-DD-20181031-KUMARVN_P-094838

PATIENT
  Age: 79 Year
  Sex: Male
  Weight: 69 kg

DRUGS (5)
  1. AMLODIPINE [Suspect]
     Active Substance: AMLODIPINE BESYLATE
     Indication: Hypertension
     Dosage: 10 MG, DAILY
     Route: 048
  2. METFORMIN [Suspect]
     Active Substance: METFORMIN HYDROCHLORIDE
     Indication: Type 2 diabetes mellitus
     Dosage: 850 MG, 2X/DAY ()
     Route: 048
  3. URAPIDIL [Suspect]
     Active Substance: URAPIDIL
     Indication: Hypertension
     Dosage: 60 MG, DAILY
     Route: 048
  4. IVUXOLIMAB [Suspect]
     Active Substance: IVUXOLIMAB
     Indication: Hepatocellular carcinoma
     Dosage: 250 MG, CYCLIC EVERY 2 WEEKS ; CYCLICAL
     Route: 042
     Dates: start: 20171019, end: 20171103
  5. SITAGLIPTIN PHOSPHATE [Suspect]
     Active Substance: SITAGLIPTIN PHOSPHATE
     Indication: Type 2 diabetes mellitus
     Dosage: 100 MILLIGRAM, DAILY
     Route: 048

REACTIONS (1)
  - Proteinuria [Recovered/Resolved]

NARRATIVE: CASE EVENT DATE: 20171102
